FAERS Safety Report 16077595 (Version 8)
Quarter: 2020Q4

REPORT INFORMATION
  Report Type: Other
  Country: CA (occurrence: CA)
  Receive Date: 20190315
  Receipt Date: 20201026
  Transmission Date: 20210113
  Serious: Yes (Other)
  Sender: FDA-Public Use
  Company Number: CA-ROCHE-2280449

PATIENT
  Age: 60 Year
  Sex: Male

DRUGS (20)
  1. GANCICLOVIR. [Suspect]
     Active Substance: GANCICLOVIR
     Indication: CHEMOTHERAPY
     Route: 042
  2. MYCOPHENOLATE MOFETIL. [Suspect]
     Active Substance: MYCOPHENOLATE MOFETIL
     Indication: PROPHYLAXIS AGAINST TRANSPLANT REJECTION
  3. BENDAMUSTINE HYDROCHLORIDE. [Suspect]
     Active Substance: BENDAMUSTINE HYDROCHLORIDE
     Indication: CHEMOTHERAPY
     Route: 042
  4. CICLOSPORIN A [Suspect]
     Active Substance: CYCLOSPORINE
     Indication: NEPHROPATHY
     Route: 065
  5. CICLOSPORIN A [Suspect]
     Active Substance: CYCLOSPORINE
     Indication: PROPHYLAXIS AGAINST TRANSPLANT REJECTION
     Dosage: THERAPY DURATION: 1 DAY
     Route: 065
  6. FOSCARNET [Suspect]
     Active Substance: FOSCARNET
     Indication: PRODUCT USED FOR UNKNOWN INDICATION
     Route: 065
  7. RITUXAN [Suspect]
     Active Substance: RITUXIMAB
     Indication: CHEMOTHERAPY
     Dosage: GP2013
     Route: 065
  8. MYCOPHENOLATE MOFETIL. [Suspect]
     Active Substance: MYCOPHENOLATE MOFETIL
     Indication: IMMUNOSUPPRESSION
     Route: 065
  9. PROCYTOX [Suspect]
     Active Substance: CYCLOPHOSPHAMIDE
     Route: 065
  10. LEFLUNOMIDE. [Suspect]
     Active Substance: LEFLUNOMIDE
     Route: 048
  11. DOXORUBICIN [Suspect]
     Active Substance: DOXORUBICIN
     Indication: CHEMOTHERAPY
     Route: 042
  12. BUSULFAN. [Suspect]
     Active Substance: BUSULFAN
     Indication: CHEMOTHERAPY
     Dosage: CONCENTRATE FOR SOLUTION FOR INFUSION
     Route: 065
  13. CYCLOPHOSPHAMIDE. [Suspect]
     Active Substance: CYCLOPHOSPHAMIDE
     Indication: CHEMOTHERAPY
     Dosage: THERAPY DURATION 1 DAY
     Route: 065
  14. GAZYVA [Suspect]
     Active Substance: OBINUTUZUMAB
     Indication: CHEMOTHERAPY
     Route: 042
  15. LEFLUNOMIDE. [Suspect]
     Active Substance: LEFLUNOMIDE
     Indication: NEPHROPATHY
     Route: 048
  16. PREDNISONE. [Suspect]
     Active Substance: PREDNISONE
     Indication: NEUROPATHY PERIPHERAL
     Route: 065
  17. PREDNISONE. [Suspect]
     Active Substance: PREDNISONE
     Indication: NEPHROPATHY
  18. ALEMTUZUMAB [Suspect]
     Active Substance: ALEMTUZUMAB
     Indication: CHEMOTHERAPY
     Route: 042
  19. PROCYTOX [Suspect]
     Active Substance: CYCLOPHOSPHAMIDE
     Indication: CHEMOTHERAPY
     Route: 042
  20. VINCRISTINE SULFATE. [Suspect]
     Active Substance: VINCRISTINE SULFATE
     Indication: CHEMOTHERAPY
     Route: 065

REACTIONS (6)
  - Intentional product use issue [Unknown]
  - Pancytopenia [Unknown]
  - Cytomegalovirus infection [Unknown]
  - End stage renal disease [Unknown]
  - Drug resistance [Unknown]
  - Off label use [Unknown]
